FAERS Safety Report 15718876 (Version 6)
Quarter: 2019Q3

REPORT INFORMATION
  Report Type: Report from Study
  Country: US (occurrence: US)
  Receive Date: 20181213
  Receipt Date: 20190703
  Transmission Date: 20191004
  Serious: No
  Sender: FDA-Public Use
  Company Number: PHEH2018US051582

PATIENT
  Age: 60 Year
  Sex: Female

DRUGS (1)
  1. GILENYA [Suspect]
     Active Substance: FINGOLIMOD HYDROCHLORIDE
     Indication: MULTIPLE SCLEROSIS
     Dosage: 0.5 MG, QD
     Route: 048
     Dates: start: 20181021

REACTIONS (9)
  - Feeling abnormal [Recovered/Resolved]
  - Ventricular extrasystoles [Unknown]
  - Balance disorder [Unknown]
  - White blood cell count increased [Unknown]
  - Headache [Unknown]
  - Fatigue [Unknown]
  - White blood cell count decreased [Unknown]
  - Alopecia [Unknown]
  - Sinusitis [Unknown]

NARRATIVE: CASE EVENT DATE: 20181120
